FAERS Safety Report 17517942 (Version 5)
Quarter: 2020Q2

REPORT INFORMATION
  Report Type: Report from Study
  Country: CA (occurrence: CA)
  Receive Date: 20200309
  Receipt Date: 20200522
  Transmission Date: 20200713
  Serious: Yes (Hospitalization, Other)
  Sender: FDA-Public Use
  Company Number: CA-GLAXOSMITHKLINE-CA2020AMR039771

PATIENT
  Age: 63 Year
  Sex: Female

DRUGS (1)
  1. MEPOLIZUMAB [Suspect]
     Active Substance: MEPOLIZUMAB
     Indication: ASTHMA
     Dosage: 100 MG, Z(MONTHLY)
     Route: 042
     Dates: start: 20171103

REACTIONS (8)
  - Productive cough [Unknown]
  - Malaise [Unknown]
  - Dyspnoea [Unknown]
  - Feeling abnormal [Unknown]
  - Bronchitis [Recovering/Resolving]
  - Respiratory tract infection [Unknown]
  - Pneumonia [Recovering/Resolving]
  - Cough [Unknown]

NARRATIVE: CASE EVENT DATE: 20200325
